FAERS Safety Report 11113761 (Version 1)
Quarter: 2015Q2

REPORT INFORMATION
  Report Type: Spontaneous
  Country: GB (occurrence: GB)
  Receive Date: 20150514
  Receipt Date: 20150514
  Transmission Date: 20150821
  Serious: Yes (Death, Other)
  Sender: FDA-Public Use
  Company Number: GB-HOSPIRA-2859552

PATIENT
  Age: 59 Year
  Sex: Male

DRUGS (5)
  1. DAUNORUBICIN [Suspect]
     Active Substance: DAUNORUBICIN
     Indication: ACUTE MONOCYTIC LEUKAEMIA
     Dosage: STARTED ON SECOND CYCLE
  2. CIPROFLOXACIN. [Concomitant]
     Active Substance: CIPROFLOXACIN
     Indication: PRODUCT USED FOR UNKNOWN INDICATION
  3. ACICLOVIR [Concomitant]
     Active Substance: ACYCLOVIR
     Indication: PRODUCT USED FOR UNKNOWN INDICATION
  4. ITRACONAZOLE. [Concomitant]
     Active Substance: ITRACONAZOLE
     Indication: PRODUCT USED FOR UNKNOWN INDICATION
  5. CYTARABINE. [Suspect]
     Active Substance: CYTARABINE
     Indication: ACUTE MONOCYTIC LEUKAEMIA
     Dosage: STARTED ON SECOND CYCLE

REACTIONS (2)
  - Completed suicide [Fatal]
  - Anxiety [Not Recovered/Not Resolved]

NARRATIVE: CASE EVENT DATE: 20150421
